FAERS Safety Report 4372852-5 (Version None)
Quarter: 2004Q2

REPORT INFORMATION
  Report Type: 
  Country: None (occurrence: None)
  Receive Date: 20040603
  Receipt Date: 20040521
  Transmission Date: 20050107
  Serious: Yes (Hospitalization, Other)
  Sender: FDA-Public Use
  Company Number: USA-2003-0009433

PATIENT
  Age: 42 Year
  Sex: Male
  Weight: 81.6 kg

DRUGS (6)
  1. OXYCONTIN [Suspect]
     Indication: PAIN
     Dosage: 20 MG, BID, ORAL
     Route: 048
     Dates: start: 20020101
  2. ALCOHOL (ETHANOL) [Suspect]
  3. MARIJUANA (CANNABIS) [Suspect]
  4. COCAINE (COCAINE) [Concomitant]
  5. NORCO [Concomitant]
  6. XANAX [Concomitant]

REACTIONS (16)
  - BACK PAIN [None]
  - DELUSION [None]
  - DISTURBANCE IN ATTENTION [None]
  - DRUG ABUSER [None]
  - DRUG DEPENDENCE [None]
  - DRUG INEFFECTIVE [None]
  - DRUG WITHDRAWAL SYNDROME [None]
  - FEELING ABNORMAL [None]
  - HALLUCINATION, AUDITORY [None]
  - INSOMNIA [None]
  - MAJOR DEPRESSION [None]
  - MEMORY IMPAIRMENT [None]
  - PAIN [None]
  - PSYCHOTIC DISORDER [None]
  - SCHIZOPHRENIA, PARANOID TYPE [None]
  - WEIGHT FLUCTUATION [None]
